FAERS Safety Report 8955874 (Version 1)
Quarter: 2012Q4

REPORT INFORMATION
  Report Type: 
  Country: DE (occurrence: DE)
  Receive Date: 20121210
  Receipt Date: 20121210
  Transmission Date: 20130627
  Serious: Yes (Hospitalization, Other)
  Sender: FDA-Public Use
  Company Number: DE-MERCK-1211DEU001815

PATIENT
  Age: 76 Year
  Sex: Male

DRUGS (2)
  1. LOSARTAN POTASSIUM [Suspect]
     Dosage: 50mg, frequncy not reported
     Route: 048
     Dates: start: 2001
  2. LOSARTAN AND HYDROCHLOROTHIAZIDE [Suspect]
     Dosage: 100/12.5mg,frequency not reported
     Route: 048
     Dates: start: 20121010, end: 20121017

REACTIONS (5)
  - Ventricular flutter [Not Recovered/Not Resolved]
  - Insomnia [Not Recovered/Not Resolved]
  - Oliguria [Unknown]
  - Cough [Unknown]
  - Nasopharyngitis [Unknown]
